FAERS Safety Report 8542043-2 (Version None)
Quarter: 2012Q3

REPORT INFORMATION
  Report Type: 
  Country: None (occurrence: None)
  Receive Date: 20120726
  Receipt Date: 20110930
  Transmission Date: 20120928
  Serious: No
  Sender: FDA-Public Use
  Company Number: US-ASTRAZENECA-2011SE59480

PATIENT
  Age: 697 Month
  Sex: Female

DRUGS (2)
  1. LORTAB [Concomitant]
  2. SEROQUEL XR [Suspect]
     Route: 048

REACTIONS (2)
  - FALL [None]
  - INTERVERTEBRAL DISC PROTRUSION [None]
